FAERS Safety Report 6793590-5 (Version None)
Quarter: 2010Q2

REPORT INFORMATION
  Report Type: 
  Country: None (occurrence: None)
  Receive Date: 20100624
  Receipt Date: 20081212
  Transmission Date: 20101027
  Serious: No
  Sender: FDA-Public Use
  Company Number: US-PFIZER INC-2008153891

PATIENT
  Sex: Male
  Weight: 31.297 kg

DRUGS (3)
  1. GENOTROPIN [Suspect]
  2. LEXAPRO [Concomitant]
  3. REMERON [Concomitant]

REACTIONS (1)
  - INCORRECT DOSE ADMINISTERED [None]
